FAERS Safety Report 9847078 (Version 2)
Quarter: 2014Q1

REPORT INFORMATION
  Report Type: Spontaneous
  Country: IT (occurrence: IT)
  Receive Date: 20140127
  Receipt Date: 20140219
  Transmission Date: 20141002
  Serious: Yes (Other)
  Sender: FDA-Public Use
  Company Number: IT-PFIZER INC-2014023741

PATIENT
  Age: 35 Year
  Sex: Female

DRUGS (2)
  1. XANAX [Suspect]
     Dosage: 20 ML, TOTAL DOSE
     Route: 048
     Dates: start: 20131112, end: 20131112
  2. PAROXETINE [Suspect]
     Dosage: 100 MG, TOTAL DOSE
     Route: 048
     Dates: start: 20131112, end: 20131112

REACTIONS (2)
  - Drug abuse [Recovering/Resolving]
  - Sopor [Recovering/Resolving]
